FAERS Safety Report 13953894 (Version 1)
Quarter: 2017Q3

REPORT INFORMATION
  Report Type: Spontaneous
  Country: US (occurrence: US)
  Receive Date: 20170908
  Receipt Date: 20170908
  Transmission Date: 20171128
  Serious: Yes (Life-Threatening, Hospitalization, Disabling)
  Sender: FDA-Public Use
  Company Number: None

PATIENT
  Age: 50 Year
  Sex: Male
  Weight: 96.2 kg

DRUGS (1)
  1. MELOXICAM. [Suspect]
     Active Substance: MELOXICAM
     Indication: TENDONITIS
     Route: 048
     Dates: start: 20170815, end: 20170831

REACTIONS (1)
  - Acute myocardial infarction [None]

NARRATIVE: CASE EVENT DATE: 20170831
